FAERS Safety Report 21015284 (Version 3)
Quarter: 2022Q3

REPORT INFORMATION
  Report Type: Spontaneous
  Country: CZ (occurrence: CZ)
  Receive Date: 20220628
  Receipt Date: 20220923
  Transmission Date: 20221027
  Serious: Yes (Other)
  Sender: FDA-Public Use
  Company Number: CZ-NOVOPROD-929493

PATIENT
  Sex: Female

DRUGS (2)
  1. NOVORAPID [Suspect]
     Active Substance: INSULIN ASPART
     Indication: Diabetes mellitus
     Dosage: 27-30 IU, QD
     Route: 058
     Dates: start: 20220613
  2. NOVORAPID [Suspect]
     Active Substance: INSULIN ASPART
     Dosage: UNK(CARTRIDGE CHANGE)
     Route: 058
     Dates: start: 20220614

REACTIONS (3)
  - Diabetic ketoacidosis [Recovered/Resolved]
  - Product physical issue [Unknown]
  - Product leakage [Unknown]

NARRATIVE: CASE EVENT DATE: 20220614
